FAERS Safety Report 7020012-1 (Version None)
Quarter: 2010Q3

REPORT INFORMATION
  Report Type: 
  Country: None (occurrence: None)
  Receive Date: 20100929
  Receipt Date: 20100923
  Transmission Date: 20110219
  Serious: Yes (Hospitalization, Other)
  Sender: FDA-Public Use
  Company Number: US-BAYER-201034179NA

PATIENT
  Age: 60 Year
  Sex: Female

DRUGS (5)
  1. BETASERON [Suspect]
     Indication: SECONDARY PROGRESSIVE MULTIPLE SCLEROSIS
     Route: 058
     Dates: start: 20051228, end: 20080627
  2. BETASERON [Suspect]
     Route: 058
     Dates: start: 20080702
  3. BETASERON [Suspect]
     Dosage: TOTAL DAILY DOSE: 8 MIU
     Route: 058
  4. BACLOFEN [Concomitant]
  5. IBUPROFEN [Concomitant]

REACTIONS (10)
  - BACK PAIN [None]
  - CHILLS [None]
  - DYSKINESIA [None]
  - FATIGUE [None]
  - FEELING COLD [None]
  - MULTIPLE SCLEROSIS [None]
  - NECK PAIN [None]
  - NERVOUSNESS [None]
  - PAIN [None]
  - PYREXIA [None]
